FAERS Safety Report 8762063 (Version 1)
Quarter: 2012Q4

REPORT INFORMATION
  Report Type: 
  Country: US (occurrence: US)
  Receive Date: 20120830
  Receipt Date: 20120830
  Transmission Date: 20130627
  Serious: Yes (Other)
  Sender: FDA-Public Use
  Company Number: US-PFIZER INC-2012212124

PATIENT
  Age: 33 Year
  Sex: Male
  Weight: 90.7 kg

DRUGS (3)
  1. LIPITOR [Suspect]
     Indication: BLOOD CHOLESTEROL INCREASED
     Dosage: 80 mg, daily
     Route: 048
     Dates: start: 200003
  2. VERAPAMIL [Concomitant]
     Indication: ANTICOAGULANT THERAPY
     Dosage: UNK, daily
     Dates: start: 200003
  3. PLAVIX [Concomitant]
     Indication: ANTICOAGULANT THERAPY
     Dosage: 75 mg, daily

REACTIONS (1)
  - Brain injury [Not Recovered/Not Resolved]
